FAERS Safety Report 4508027-6 (Version None)
Quarter: 2004Q4

REPORT INFORMATION
  Report Type: 
  Country: None (occurrence: None)
  Receive Date: 20041123
  Receipt Date: 20030102
  Transmission Date: 20050328
  Serious: No
  Sender: FDA-Public Use
  Company Number: US-GLAXOSMITHKLINE-A0390353A

PATIENT
  Sex: Female

DRUGS (2)
  1. WELLBUTRIN [Suspect]
     Indication: ANXIETY
     Dosage: 150MG TWICE PER DAY
     Route: 048
  2. ZOLOFT [Concomitant]
     Dosage: 50MG PER DAY

REACTIONS (5)
  - DEPRESSION [None]
  - LETHARGY [None]
  - MUSCLE TWITCHING [None]
  - OBSESSIVE-COMPULSIVE PERSONALITY DISORDER [None]
  - SOMNOLENCE [None]
